FAERS Safety Report 5078387-9 (Version None)
Quarter: 2006Q3

REPORT INFORMATION
  Report Type: 
  Country: None (occurrence: None)
  Receive Date: 20060811
  Receipt Date: 20060804
  Transmission Date: 20061208
  Serious: Yes (Death)
  Sender: FDA-Public Use
  Company Number: 457008

PATIENT
  Age: 82 Year
  Sex: Female

DRUGS (5)
  1. CARVEDILOL [Suspect]
     Indication: AORTIC VALVE INCOMPETENCE
     Route: 048
     Dates: start: 20041125, end: 20050831
  2. FUROSEMIDE [Concomitant]
  3. ALDACTONE A [Concomitant]
  4. BLOPRESS [Concomitant]
  5. ALLOPURINOL [Concomitant]

REACTIONS (3)
  - AORTIC VALVE INCOMPETENCE [None]
  - CARDIAC FAILURE [None]
  - CONDITION AGGRAVATED [None]
